FAERS Safety Report 7582637-4 (Version None)
Quarter: 2011Q2

REPORT INFORMATION
  Report Type: 
  Country: None (occurrence: None)
  Receive Date: 20110630
  Receipt Date: 20110627
  Transmission Date: 20111010
  Serious: No
  Sender: FDA-Public Use
  Company Number: US-PFIZER INC-2011144819

PATIENT
  Sex: Female

DRUGS (1)
  1. PRISTIQ [Suspect]

REACTIONS (7)
  - POLYURIA [None]
  - INSOMNIA [None]
  - ANXIETY [None]
  - CONTUSION [None]
  - BLOOD PRESSURE INCREASED [None]
  - POLLAKIURIA [None]
  - FATIGUE [None]
